FAERS Safety Report 17616767 (Version 4)
Quarter: 2020Q3

REPORT INFORMATION
  Report Type: Spontaneous
  Country: PL (occurrence: PL)
  Receive Date: 20200402
  Receipt Date: 20200925
  Transmission Date: 20201102
  Serious: Yes (Death, Life-Threatening, Hospitalization, Other)
  Sender: FDA-Public Use
  Company Number: PL-VELOXIS PHARMACEUTICALS-2020VELPL-000306

PATIENT
  Age: 61 Year
  Sex: Female

DRUGS (15)
  1. THALIDOMIDE [Suspect]
     Active Substance: THALIDOMIDE
     Indication: PLASMA CELL MYELOMA
     Dosage: 10 CYCLES
  2. VALGANCICLOVIR. [Suspect]
     Active Substance: VALGANCICLOVIR
     Indication: CYTOMEGALOVIRUS INFECTION
     Dosage: 1800 MG, QD (900 MG 0.5 DAY)
  3. ENVARSUS XR [Suspect]
     Active Substance: TACROLIMUS
     Indication: GRAFT VERSUS HOST DISEASE
     Dosage: +100 FOLLOWING ASCT
     Route: 065
  4. MYCOPHENOLATE MOFETIL. [Suspect]
     Active Substance: MYCOPHENOLATE MOFETIL
     Indication: IMMUNOSUPPRESSANT DRUG THERAPY
  5. THALIDOMIDE [Suspect]
     Active Substance: THALIDOMIDE
     Dosage: 2 CYCLES
  6. GANCICLOVIR. [Suspect]
     Active Substance: GANCICLOVIR
     Indication: CYTOMEGALOVIRUS INFECTION
  7. MELPHALAN. [Suspect]
     Active Substance: MELPHALAN
     Indication: BONE MARROW CONDITIONING REGIMEN
     Dosage: 200 MG
  8. DEXAMETHASONE. [Suspect]
     Active Substance: DEXAMETHASONE
     Indication: PLASMA CELL MYELOMA
     Dosage: 10 CYCLES
  9. DEXAMETHASONE. [Suspect]
     Active Substance: DEXAMETHASONE
     Dosage: 2 CYCLES
  10. MYCOPHENOLATE MOFETIL. [Suspect]
     Active Substance: MYCOPHENOLATE MOFETIL
     Indication: GRAFT VERSUS HOST DISEASE
     Dosage: +100 FOLLOWING ASCT
     Route: 065
  11. BORTEZOMIB. [Suspect]
     Active Substance: BORTEZOMIB
     Indication: PLASMA CELL MYELOMA
     Dosage: 10 CYCLES
  12. CYCLOPHOSPHAMIDE. [Suspect]
     Active Substance: CYCLOPHOSPHAMIDE
     Indication: PLASMA CELL MYELOMA
     Dosage: 2 CYCLES
  13. MELPHALAN. [Suspect]
     Active Substance: MELPHALAN
     Indication: PLASMA CELL MYELOMA
     Dosage: 350 MG
  14. METHYLPREDNISOLONE. [Suspect]
     Active Substance: METHYLPREDNISOLONE
     Indication: GRAFT VERSUS HOST DISEASE
     Dosage: +100 FOLLOWING ASCT
     Route: 065
  15. METHYLPREDNISOLONE. [Suspect]
     Active Substance: METHYLPREDNISOLONE
     Indication: IMMUNOSUPPRESSANT DRUG THERAPY

REACTIONS (18)
  - Graft versus host disease [Fatal]
  - General physical condition abnormal [Fatal]
  - Rash [Fatal]
  - Therapeutic product effect incomplete [Not Recovered/Not Resolved]
  - Cytomegalovirus infection reactivation [Fatal]
  - Infection [Fatal]
  - Skin exfoliation [Fatal]
  - Dry skin [Fatal]
  - Asthenia [Fatal]
  - Appetite disorder [Fatal]
  - Pneumonia [Fatal]
  - Drug ineffective [Fatal]
  - Weight decreased [Fatal]
  - Gastrointestinal disorder [Fatal]
  - Off label use [Fatal]
  - Pancytopenia [Fatal]
  - Diarrhoea [Fatal]
  - Cytomegalovirus infection [Fatal]
